FAERS Safety Report 15532648 (Version 1)
Quarter: 2018Q4

REPORT INFORMATION
  Report Type: Spontaneous
  Country: TR (occurrence: TR)
  Receive Date: 20181019
  Receipt Date: 20181019
  Transmission Date: 20190205
  Serious: Yes (Life-Threatening, Hospitalization, Other)
  Sender: FDA-Public Use
  Company Number: TR-MACLEODS PHARMACEUTICALS US LTD-MAC2018017445

PATIENT

DRUGS (12)
  1. L-THYROXINE SODIUM TABLET [Suspect]
     Active Substance: LEVOTHYROXINE SODIUM
     Indication: BASEDOW^S DISEASE
  2. OLANZAPINE TABLET [Suspect]
     Active Substance: OLANZAPINE
     Indication: PERINATAL DEPRESSION
     Dosage: 160 MILLIGRAM 1 TOTAL, EIGHT TABLETS OF 20 MG OLANZAPINE (160 MG)
     Route: 048
  3. PROPRANOLOL [Concomitant]
     Active Substance: PROPRANOLOL HYDROCHLORIDE
     Indication: PRODUCT USED FOR UNKNOWN INDICATION
     Dosage: 20 MILLIGRAM, QID
     Route: 042
  4. CITALOPRAM HYDROBROMIDE. [Suspect]
     Active Substance: CITALOPRAM HYDROBROMIDE
     Indication: SUICIDE ATTEMPT
     Dosage: 20 MILLIGRAM, QD
     Route: 048
  5. L-THYROXINE SODIUM TABLET [Suspect]
     Active Substance: LEVOTHYROXINE SODIUM
     Indication: SUICIDE ATTEMPT
     Dosage: 15 MILLIGRAM, 1 TOTAL, HIGH DOSE, HUNDRED TABLETS OF LEVOTHYROXINE SODIUM (15 MG)
     Route: 048
  6. CITALOPRAM HYDROBROMIDE. [Suspect]
     Active Substance: CITALOPRAM HYDROBROMIDE
     Indication: PERINATAL DEPRESSION
     Dosage: 160 MG 1 TOTAL, EIGHT TABLETS OF CITALOPRAM HYDROBROMIDE (160 MG)
     Route: 048
  7. METHYLPREDNISOLONE. [Concomitant]
     Active Substance: METHYLPREDNISOLONE
     Indication: PRODUCT USED FOR UNKNOWN INDICATION
     Dosage: 20 MILLIGRAM, TID
     Route: 042
  8. CALCIUM [Concomitant]
     Active Substance: CALCIUM
     Indication: PRODUCT USED FOR UNKNOWN INDICATION
     Dosage: UNK, QD
     Route: 065
  9. CHOLESTYRAMINE. [Concomitant]
     Active Substance: CHOLESTYRAMINE
     Indication: PRODUCT USED FOR UNKNOWN INDICATION
     Dosage: UNK, 3X3 GR (NT)
     Route: 065
  10. OLANZAPINE TABLET [Suspect]
     Active Substance: OLANZAPINE
     Indication: SUICIDE ATTEMPT
     Dosage: 20 MILLIGRAM, QD
     Route: 048
  11. L-THYROXINE SODIUM TABLET [Suspect]
     Active Substance: LEVOTHYROXINE SODIUM
     Indication: HYPOPARATHYROIDISM
     Dosage: 150 MICROGRAM, QD
     Route: 048
  12. CALCITRIOL. [Concomitant]
     Active Substance: CALCITRIOL
     Indication: PRODUCT USED FOR UNKNOWN INDICATION
     Dosage: UNK UNK, QD
     Route: 065

REACTIONS (7)
  - Agitation [Recovered/Resolved]
  - Systolic hypertension [Recovered/Resolved]
  - Hyperthyroidism [Recovered/Resolved]
  - Acute respiratory failure [Recovered/Resolved]
  - Sinus tachycardia [Recovered/Resolved]
  - Toxicity to various agents [Recovered/Resolved]
  - Intentional overdose [Recovered/Resolved]
